FAERS Safety Report 24751516 (Version 3)
Quarter: 2025Q4

REPORT INFORMATION
  Report Type: Spontaneous
  Country: US (occurrence: US)
  Receive Date: 20241219
  Receipt Date: 20251217
  Transmission Date: 20260118
  Serious: No
  Sender: PACIRA
  Company Number: US-ORG100016242-2024000312

PATIENT
  Age: 75 Year
  Sex: Female

DRUGS (2)
  1. EXPAREL [Suspect]
     Active Substance: BUPIVACAINE
     Indication: Hip arthroplasty
     Dosage: NOT PROVIDED
     Route: 065
     Dates: start: 20240508, end: 20240508
  2. UNSPECIFIED INGREDIENT [Concomitant]
     Active Substance: UNSPECIFIED INGREDIENT
     Indication: General anaesthesia
     Dosage: NOT PROVIDED
     Route: 065
     Dates: start: 20240508, end: 20240508

REACTIONS (2)
  - Drug ineffective [Unknown]
  - Confusional state [Unknown]
